FAERS Safety Report 24142812 (Version 1)
Quarter: 2024Q3

REPORT INFORMATION
  Report Type: Spontaneous
  Country: AT (occurrence: AT)
  Receive Date: 20240726
  Receipt Date: 20240726
  Transmission Date: 20241017
  Serious: Yes (Death, Hospitalization, Other)
  Sender: DAIICHI
  Company Number: AT-DSJP-DSE-2024-137333

PATIENT
  Age: 61 Year
  Sex: Female

DRUGS (1)
  1. ENHERTU [Suspect]
     Active Substance: FAM-TRASTUZUMAB DERUXTECAN-NXKI
     Indication: HER2 positive breast cancer
     Dosage: UNK
     Route: 065
     Dates: start: 202306

REACTIONS (3)
  - Death [Fatal]
  - General physical health deterioration [Unknown]
  - Pneumonitis [Unknown]
